FAERS Safety Report 19513090 (Version 2)
Quarter: 2021Q3

REPORT INFORMATION
  Report Type: Spontaneous
  Country: US (occurrence: US)
  Receive Date: 20210709
  Receipt Date: 20210924
  Transmission Date: 20211014
  Serious: No
  Sender: FDA-Public Use
  Company Number: US-MYLANLABS-2020M1089019

PATIENT
  Age: 41 Year
  Sex: Female
  Weight: 73 kg

DRUGS (6)
  1. FENTANYL TRANSDERMAL SYSTEM [Suspect]
     Active Substance: FENTANYL
     Indication: BACK PAIN
     Dosage: 37.5 MICROGRAM, QH, QOD
     Route: 062
  2. GABAPENTIN. [Concomitant]
     Active Substance: GABAPENTIN
     Dosage: 900 MILLIGRAM, TID
  3. POTASSIUM [Concomitant]
     Active Substance: POTASSIUM
     Dosage: 10 MICROEQUIVALENT, QD
  4. FOLIC ACID. [Concomitant]
     Active Substance: FOLIC ACID
     Dosage: 10 MILLIGRAM, QD
  5. FENTANYL TRANSDERMAL SYSTEM [Suspect]
     Active Substance: FENTANYL
     Indication: PROCEDURAL PAIN
     Dosage: 37.5 MICROGRAM, QH, EVERY 48 HOURS
     Route: 062
     Dates: start: 20201018
  6. HYDROXYCHLOROQUINE                 /00072603/ [Concomitant]
     Active Substance: HYDROXYCHLOROQUINE SULFATE
     Dosage: 200 MILLIGRAM, QD

REACTIONS (3)
  - Off label use [Unknown]
  - Product quality issue [Unknown]
  - Product packaging quantity issue [Unknown]

NARRATIVE: CASE EVENT DATE: 20201018
